FAERS Safety Report 17114453 (Version 1)
Quarter: 2019Q4

REPORT INFORMATION
  Report Type: Spontaneous
  Country: US (occurrence: US)
  Receive Date: 20191112
  Receipt Date: 20191112
  Transmission Date: 20200122
  Serious: No
  Sender: FDA-Public Use
  Company Number: None

PATIENT
  Sex: Male

DRUGS (2)
  1. OXALIPLATIN INJECTION [Concomitant]
     Active Substance: OXALIPLATIN
  2. CAPECITABINE 500MG NOVADOZ [Suspect]
     Active Substance: CAPECITABINE
     Indication: COLON CANCER
     Route: 048
     Dates: start: 20190924

REACTIONS (4)
  - Dyspnoea [None]
  - Chest discomfort [None]
  - Bronchospasm [None]
  - Feeling cold [None]
